FAERS Safety Report 8114908 (Version 13)
Quarter: 2017Q2

REPORT INFORMATION
  Report Type: Report from Study
  Country: CA (occurrence: CA)
  Receive Date: 20110831
  Receipt Date: 20170530
  Transmission Date: 20170830
  Serious: Yes (Hospitalization, Other)
  Sender: FDA-Public Use
  Company Number: PHHY2011CA77003

PATIENT
  Age: 76 Year
  Sex: Female

DRUGS (7)
  1. GRAVOL [Concomitant]
     Active Substance: DIMENHYDRINATE
     Indication: PRODUCT USED FOR UNKNOWN INDICATION
     Route: 065
  2. SANDOSTATIN LAR DEPOT [Suspect]
     Active Substance: OCTREOTIDE ACETATE
     Dosage: 20 MG, QMO
     Route: 030
     Dates: start: 20110911
  3. SANDOSTATIN [Suspect]
     Active Substance: OCTREOTIDE ACETATE
     Indication: DUMPING SYNDROME
     Dosage: UNK UNK, TID
     Route: 058
     Dates: start: 2006, end: 201108
  4. ASA [Concomitant]
     Active Substance: ASPIRIN
     Indication: PRODUCT USED FOR UNKNOWN INDICATION
     Route: 065
  5. SANDOSTATIN LAR DEPOT [Suspect]
     Active Substance: OCTREOTIDE ACETATE
     Indication: DUMPING SYNDROME
     Dosage: 20 MG, QMO
     Route: 030
     Dates: start: 20110816
  6. METOPROLOL. [Suspect]
     Active Substance: METOPROLOL
     Indication: DUMPING SYNDROME
     Dosage: UNK
     Route: 048
  7. PANTOPRAZOLE [Concomitant]
     Active Substance: PANTOPRAZOLE
     Indication: PRODUCT USED FOR UNKNOWN INDICATION
     Dosage: 40 MG, BID
     Route: 065

REACTIONS (31)
  - Renal disorder [Unknown]
  - Blood pressure systolic increased [Unknown]
  - Hypotension [Unknown]
  - Dizziness [Unknown]
  - Decreased appetite [Unknown]
  - Syncope [Recovered/Resolved]
  - Dysphagia [Unknown]
  - Feeling abnormal [Unknown]
  - Injection site swelling [Unknown]
  - Fall [Unknown]
  - Chest pain [Unknown]
  - Abdominal discomfort [Unknown]
  - Diarrhoea [Unknown]
  - Frequent bowel movements [Unknown]
  - Nausea [Unknown]
  - Vomiting [Unknown]
  - Headache [Unknown]
  - Malaise [Unknown]
  - Dyspnoea [Unknown]
  - Sleep disorder [Unknown]
  - Hyperhidrosis [Unknown]
  - Musculoskeletal chest pain [Unknown]
  - Injection site pain [Unknown]
  - Off label use [Unknown]
  - Diplopia [Unknown]
  - Weight decreased [Unknown]
  - Abdominal pain upper [Unknown]
  - Night sweats [Unknown]
  - Blood pressure fluctuation [Unknown]
  - Musculoskeletal pain [Unknown]
  - Arthralgia [Unknown]

NARRATIVE: CASE EVENT DATE: 201109
